FAERS Safety Report 9548254 (Version 1)
Quarter: 2013Q2

REPORT INFORMATION
  Report Type: Spontaneous
  Country: US (occurrence: None)
  Receive Date: 20130627
  Receipt Date: 20130627
  Transmission Date: 20140414
  Serious: No
  Sender: FDA-Public Use
  Company Number: 1000044816

PATIENT
  Age: 51 Year
  Sex: Female

DRUGS (3)
  1. LINZESS (LINACLOTIDE) (145 MICROGRAM, CAPSULES) [Suspect]
     Indication: IRRITABLE BOWEL SYNDROME
     Dosage: 145 MCG, (145 MCG, 1 IN 1 D0, ORAL
     Route: 048
     Dates: start: 20130422
  2. LINZESS (LINACLOTIDE) (145 MICROGRAM, CAPSULES) [Suspect]
     Indication: CONSTIPATION
     Dosage: 145 MCG, (145 MCG, 1 IN 1 D0, ORAL
     Route: 048
     Dates: start: 20130422
  3. ESTRADIOL (ESTRADIOL) (ESTRADIOL) [Concomitant]

REACTIONS (5)
  - Diarrhoea [None]
  - Headache [None]
  - Dry mouth [None]
  - Dysgeusia [None]
  - Paraesthesia oral [None]
